FAERS Safety Report 21959990 (Version 3)
Quarter: 2023Q1

REPORT INFORMATION
  Report Type: Report from Study
  Country: US (occurrence: US)
  Receive Date: 20230206
  Receipt Date: 20230223
  Transmission Date: 20230418
  Serious: Yes (Other)
  Sender: FDA-Public Use
  Company Number: US-BIOVITRUM-2023US01442

PATIENT
  Age: 53 Year
  Sex: Female

DRUGS (2)
  1. KINERET [Suspect]
     Active Substance: ANAKINRA
     Indication: Rheumatoid arthritis
     Dates: start: 20230109
  2. KINERET [Suspect]
     Active Substance: ANAKINRA
     Dates: start: 20230110, end: 20230127

REACTIONS (9)
  - Cellulitis [Unknown]
  - Hypersensitivity [Unknown]
  - Injection site pain [Unknown]
  - Injection site pruritus [Unknown]
  - Injection site erythema [Unknown]
  - Injection site mass [Unknown]
  - Injection site urticaria [Unknown]
  - Injection site warmth [Unknown]
  - Injection site swelling [Unknown]

NARRATIVE: CASE EVENT DATE: 20230127
